FAERS Safety Report 24966067 (Version 1)
Quarter: 2025Q1

REPORT INFORMATION
  Report Type: Report from Study
  Country: CN (occurrence: CN)
  Receive Date: 20250213
  Receipt Date: 20250213
  Transmission Date: 20250408
  Serious: Yes (Hospitalization)
  Sender: TAKEDA
  Company Number: CN-TAKEDA-2025TUS015961

PATIENT
  Sex: Male

DRUGS (1)
  1. IXAZOMIB [Suspect]
     Active Substance: IXAZOMIB
     Indication: Plasma cell myeloma

REACTIONS (1)
  - Cough [Unknown]
